FAERS Safety Report 6116915-2 (Version None)
Quarter: 2009Q1

REPORT INFORMATION
  Report Type: 
  Country: None (occurrence: None)
  Receive Date: 20090314
  Receipt Date: 20081231
  Transmission Date: 20090719
  Serious: No
  Sender: FDA-Public Use
  Company Number: US-ABBOTT-09P-163-0495474-00

PATIENT
  Sex: Female
  Weight: 90.8 kg

DRUGS (6)
  1. HUMIRA [Suspect]
     Indication: PSORIATIC ARTHROPATHY
     Dates: start: 20080901
  2. KLONOPIN [Concomitant]
     Indication: ANXIETY
     Dosage: 2 A DAY AND THEN 1A DAY FOR 3 WEEKS AND THEN STOPPED THEM
     Dates: start: 20060101, end: 20081101
  3. AMBIEN [Concomitant]
     Indication: DRUG USE FOR UNKNOWN INDICATION
  4. ASPIRIN [Concomitant]
     Indication: DRUG USE FOR UNKNOWN INDICATION
     Dosage: FOR WOMEN
     Dates: start: 20081223
  5. METOPROLOL TARTRATE [Concomitant]
     Indication: BLOOD PRESSURE
     Dates: start: 20081223
  6. XANAX [Concomitant]
     Indication: DEPRESSION
     Dates: start: 20081223

REACTIONS (8)
  - DEPRESSED MOOD [None]
  - DIZZINESS [None]
  - HYPERTENSION [None]
  - PARANOIA [None]
  - PRURITUS [None]
  - RESPIRATORY TRACT CONGESTION [None]
  - SKIN DISORDER [None]
  - TINNITUS [None]
